FAERS Safety Report 7555564-6 (Version None)
Quarter: 2011Q2

REPORT INFORMATION
  Report Type: 
  Country: None (occurrence: None)
  Receive Date: 20110617
  Receipt Date: 20051213
  Transmission Date: 20111010
  Serious: Yes (Other)
  Sender: FDA-Public Use
  Company Number: PHNU2005DE04124

PATIENT
  Sex: Male

DRUGS (2)
  1. VALSARTAN [Suspect]
     Indication: HYPERTENSION
     Dosage: 1 DF, QD
     Dates: start: 20050701, end: 20050822
  2. ACETYL SALICYLIC ACID COMPOUND TAB [Concomitant]

REACTIONS (2)
  - WEIGHT DECREASED [None]
  - FIBROSARCOMA [None]
